FAERS Safety Report 6948914-2 (Version None)
Quarter: 2010Q3

REPORT INFORMATION
  Report Type: 
  Country: None (occurrence: None)
  Receive Date: 20100828
  Receipt Date: 20091228
  Transmission Date: 20110219
  Serious: No
  Sender: FDA-Public Use
  Company Number: US-ABBOTT-09P-163-0611825-00

PATIENT
  Sex: Male

DRUGS (5)
  1. NIASPAN [Suspect]
     Indication: BLOOD CHOLESTEROL INCREASED
     Dates: start: 20080101, end: 20080101
  2. NIASPAN [Suspect]
     Dates: start: 20090601, end: 20091125
  3. VITAMINS WITH NIACIN [Concomitant]
     Indication: VITAMIN SUPPLEMENTATION
     Dosage: DAILY
  4. NAPROXEN [Concomitant]
     Indication: PAIN
     Dosage: UNKNOWN
  5. NAPROXEN [Concomitant]

REACTIONS (4)
  - FEELING COLD [None]
  - FLUSHING [None]
  - HYPERHIDROSIS [None]
  - NAUSEA [None]
